FAERS Safety Report 22625769 (Version 1)
Quarter: 2023Q2

REPORT INFORMATION
  Report Type: Spontaneous
  Country: BY (occurrence: BY)
  Receive Date: 20230621
  Receipt Date: 20230621
  Transmission Date: 20230721
  Serious: Yes (Other)
  Sender: FDA-Public Use
  Company Number: BY-FreseniusKabi-FK202308934

PATIENT
  Sex: Female

DRUGS (2)
  1. CISPLATIN [Suspect]
     Active Substance: CISPLATIN
     Indication: Tongue cancer metastatic
     Dosage: 2 COURSES
  2. CISPLATIN [Suspect]
     Active Substance: CISPLATIN
     Dosage: 2 COURSES?60 GY

REACTIONS (1)
  - Stomatitis [Unknown]
